FAERS Safety Report 8968615 (Version 2)
Quarter: 2013Q3

REPORT INFORMATION
  Report Type: Spontaneous
  Country: US (occurrence: US)
  Receive Date: 20121218
  Receipt Date: 20130814
  Transmission Date: 20140515
  Serious: No
  Sender: FDA-Public Use
  Company Number: US-BIOGENIDEC-2012BI060345

PATIENT
  Sex: Female

DRUGS (12)
  1. TYSABRI [Suspect]
     Indication: MULTIPLE SCLEROSIS
     Route: 042
     Dates: start: 201206
  2. SIMVASTATIN [Concomitant]
     Route: 048
  3. METFORMIN HCL [Concomitant]
     Route: 048
  4. MICARDIS [Concomitant]
     Route: 048
  5. BACLOFEN [Concomitant]
     Route: 048
  6. VESICARE [Concomitant]
     Route: 048
  7. TRAMADOL HCL [Concomitant]
     Route: 048
  8. GABAPENTIN [Concomitant]
     Route: 048
  9. VITAMIN D [Concomitant]
     Route: 048
  10. AMPYRA [Concomitant]
     Route: 048
  11. KETOCONAZOLE [Concomitant]
  12. COUMADIN [Concomitant]
     Route: 048

REACTIONS (9)
  - Cerebellar syndrome [Unknown]
  - Ataxia [Unknown]
  - Gait disturbance [Unknown]
  - Decreased vibratory sense [Unknown]
  - Visual acuity reduced [Unknown]
  - Back pain [Unknown]
  - Balance disorder [Recovered/Resolved]
  - Muscular weakness [Recovered/Resolved]
  - Drug ineffective [Recovered/Resolved]
